FAERS Safety Report 6894602-0 (Version None)
Quarter: 2010Q3

REPORT INFORMATION
  Report Type: 
  Country: None (occurrence: None)
  Receive Date: 20100802
  Receipt Date: 20100722
  Transmission Date: 20110219
  Serious: Yes (Hospitalization)
  Sender: FDA-Public Use
  Company Number: SE-ASTRAZENECA-2010SE34313

PATIENT
  Age: 78 Year
  Sex: Male

DRUGS (15)
  1. MEROPENEM [Suspect]
     Indication: PNEUMONIA ASPIRATION
     Dates: start: 20091119, end: 20091203
  2. PANDEMRIX [Suspect]
     Indication: IMMUNISATION
     Route: 030
     Dates: start: 20091105, end: 20091105
  3. TROMBYL [Suspect]
     Indication: CARDIAC FAILURE
     Route: 048
  4. HEMINEVRIN [Concomitant]
  5. ATACAND [Concomitant]
  6. RISPERDAL [Concomitant]
  7. PEVARYL [Concomitant]
  8. AMARYL [Concomitant]
  9. NULYTELY [Concomitant]
  10. SIMVASTATIN [Concomitant]
  11. METOPROLOL TARTRATE [Concomitant]
  12. NITROMEX [Concomitant]
  13. FOLACIN [Concomitant]
  14. ACETAMINOPHEN [Concomitant]
  15. IMDUR [Concomitant]

REACTIONS (3)
  - DEPRESSED LEVEL OF CONSCIOUSNESS [None]
  - GASTROINTESTINAL HAEMORRHAGE [None]
  - PSEUDOMEMBRANOUS COLITIS [None]
